FAERS Safety Report 7938161-X (Version None)
Quarter: 2011Q4

REPORT INFORMATION
  Report Type: 
  Country: None (occurrence: None)
  Receive Date: 20111123
  Receipt Date: 20111020
  Transmission Date: 20120403
  Serious: No
  Sender: FDA-Public Use
  Company Number: US-BRISTOL-MYERS SQUIBB COMPANY-16168122

PATIENT
  Age: 74 Year
  Sex: Female
  Weight: 65 kg

DRUGS (4)
  1. ZANTAC [Concomitant]
  2. GLIPIZIDE [Concomitant]
  3. AMARYL [Concomitant]
  4. ONGLYZA [Suspect]
     Route: 048
     Dates: start: 20110101

REACTIONS (1)
  - GLOMERULAR FILTRATION RATE INCREASED [None]
